FAERS Safety Report 24030911 (Version 1)
Quarter: 2024Q2

REPORT INFORMATION
  Report Type: Report from Study
  Country: US (occurrence: US)
  Receive Date: 20240628
  Receipt Date: 20240628
  Transmission Date: 20240716
  Serious: No
  Sender: FDA-Public Use
  Company Number: US-APELLIS-2024-APL-0000292

PATIENT

DRUGS (1)
  1. PEGCETACOPLAN [Suspect]
     Active Substance: PEGCETACOPLAN
     Indication: Product used for unknown indication
     Dosage: 1080MG TWICE A WEEK
     Route: 058
     Dates: start: 20230207

REACTIONS (7)
  - Malaise [Unknown]
  - Brain fog [Unknown]
  - Nasal congestion [Unknown]
  - Laboratory test abnormal [Unknown]
  - Dizziness [Unknown]
  - Epistaxis [Unknown]
  - Pyrexia [Unknown]
